FAERS Safety Report 12745214 (Version 2)
Quarter: 2017Q1

REPORT INFORMATION
  Report Type: Report from Study
  Country: US (occurrence: US)
  Receive Date: 20160915
  Receipt Date: 20170123
  Transmission Date: 20170428
  Serious: No
  Sender: FDA-Public Use
  Company Number: US-AMGEN-USASL2016122332

PATIENT
  Age: 61 Year
  Sex: Female

DRUGS (2)
  1. FLOMAX [Concomitant]
     Active Substance: TAMSULOSIN HYDROCHLORIDE
     Dosage: UNK
  2. ENBREL [Suspect]
     Active Substance: ETANERCEPT
     Indication: RHEUMATOID ARTHRITIS
     Dosage: 50 MG, QWK
     Route: 065

REACTIONS (6)
  - Pain in extremity [Unknown]
  - Muscle strain [Unknown]
  - Arthralgia [Unknown]
  - Neuralgia [Not Recovered/Not Resolved]
  - Burning sensation [Unknown]
  - Ultrasound bladder [Unknown]
